FAERS Safety Report 10032750 (Version 1)
Quarter: 2014Q1

REPORT INFORMATION
  Report Type: Spontaneous
  Country: US (occurrence: US)
  Receive Date: 20140324
  Receipt Date: 20140324
  Transmission Date: 20141002
  Serious: Yes (Other)
  Sender: FDA-Public Use
  Company Number: US-ABBVIE-14P-163-1213281-00

PATIENT
  Sex: Female
  Weight: 61.74 kg

DRUGS (9)
  1. HUMIRA [Suspect]
     Indication: RHEUMATOID ARTHRITIS
     Dates: start: 2002
  2. HUMIRA [Suspect]
     Indication: CROHN^S DISEASE
  3. METOPROLOL [Concomitant]
     Indication: HYPERTENSION
  4. POTASSIUM CHLORIDE [Concomitant]
     Indication: HYPERTENSION
  5. PROBIOTIC [Concomitant]
     Indication: SUPPLEMENTATION THERAPY
  6. ASACOL [Concomitant]
     Indication: CROHN^S DISEASE
  7. OMEPRAZOLE [Concomitant]
     Indication: GASTROOESOPHAGEAL REFLUX DISEASE
  8. TEGRATOL XR [Concomitant]
     Indication: PAIN IN JAW
  9. PREDNISONE [Concomitant]
     Indication: PAIN

REACTIONS (5)
  - Lymphadenopathy [Not Recovered/Not Resolved]
  - Swelling face [Not Recovered/Not Resolved]
  - Lymphoma [Unknown]
  - Weight decreased [Not Recovered/Not Resolved]
  - Candida infection [Not Recovered/Not Resolved]
